FAERS Safety Report 5643324-2 (Version None)
Quarter: 2008Q1

REPORT INFORMATION
  Report Type: 
  Country: None (occurrence: None)
  Receive Date: 20080131
  Receipt Date: 20071218
  Transmission Date: 20080703
  Serious: Yes (Hospitalization)
  Sender: FDA-Public Use
  Company Number: 163-21880-07121058

PATIENT
  Age: 83 Year
  Sex: Female

DRUGS (10)
  1. REVLIMID [Suspect]
     Indication: MULTIPLE MYELOMA
     Dosage: 15 MG, 1 IN 1 D, ORAL
     Route: 048
     Dates: start: 20070921
  2. FOSAMAX(ALENDRNATE SODIUM) [Concomitant]
  3. CALCIUM [Concomitant]
  4. PEPCID [Concomitant]
  5. NEURONTIN [Concomitant]
  6. COLACE (DOCUSATE SODIUM) [Concomitant]
  7. SYNTHROID [Concomitant]
  8. MEGACE [Concomitant]
  9. DURAGESIC-100 [Concomitant]
  10. PERIACTIN [Concomitant]

REACTIONS (1)
  - DEEP VEIN THROMBOSIS [None]
